FAERS Safety Report 5118797-4 (Version None)
Quarter: 2006Q3

REPORT INFORMATION
  Report Type: 
  Country: None (occurrence: None)
  Receive Date: 20060927
  Receipt Date: 20060915
  Transmission Date: 20061208
  Serious: No
  Sender: FDA-Public Use
  Company Number: 229962

PATIENT
  Age: 17 Year
  Sex: Male
  Weight: 75.5 kg

DRUGS (4)
  1. NUTROPIN [Suspect]
     Indication: GROWTH HORMONE DEFICIENCY
     Dosage: 4.5 MG, 7/WEEK, SUBCUTANEOUS
     Route: 058
     Dates: start: 20020122
  2. CORTEF [Concomitant]
  3. SYNTHROID [Concomitant]
  4. TESTOSTERONE [Concomitant]

REACTIONS (1)
  - APPENDICITIS [None]
